FAERS Safety Report 7120711-7 (Version None)
Quarter: 2010Q4

REPORT INFORMATION
  Report Type: 
  Country: None (occurrence: None)
  Receive Date: 20101124
  Receipt Date: 20101115
  Transmission Date: 20110411
  Serious: Yes (Hospitalization)
  Sender: FDA-Public Use
  Company Number: JP-JNJFOC-20101104769

PATIENT
  Sex: Female
  Weight: 38 kg

DRUGS (9)
  1. REMICADE [Suspect]
     Indication: RHEUMATOID ARTHRITIS
     Route: 042
  2. REMICADE [Suspect]
     Route: 042
  3. METHOTREXATE [Suspect]
     Indication: RHEUMATOID ARTHRITIS
     Route: 048
  4. METHOTREXATE [Suspect]
     Route: 048
  5. METHOTREXATE [Suspect]
     Route: 048
  6. BENET [Suspect]
     Indication: OSTEOPOROSIS
     Route: 048
  7. OMEPRAZOLE [Suspect]
     Indication: REFLUX OESOPHAGITIS
     Route: 048
  8. ETODOLAC [Suspect]
     Indication: RHEUMATOID ARTHRITIS
     Route: 048
  9. GASROIL [Suspect]
     Indication: RHEUMATOID ARTHRITIS
     Route: 048

REACTIONS (2)
  - PNEUMOCYSTIS JIROVECI PNEUMONIA [None]
  - PNEUMONIA [None]
